FAERS Safety Report 23345915 (Version 3)
Quarter: 2024Q1

REPORT INFORMATION
  Report Type: Report from Study
  Country: JP (occurrence: None)
  Receive Date: 20231228
  Receipt Date: 20240307
  Transmission Date: 20240409
  Serious: Yes (Death, Life-Threatening, Other)
  Sender: FDA-Public Use
  Company Number: 2023A293721

PATIENT
  Age: 82 Year
  Sex: Male
  Weight: 47 kg

DRUGS (2)
  1. IMFINZI [Suspect]
     Active Substance: DURVALUMAB
     Indication: Hepatocellular carcinoma
     Dosage: 1500 MG
     Route: 041
     Dates: start: 20230406, end: 20230406
  2. IMJUDO [Suspect]
     Active Substance: TREMELIMUMAB\TREMELIMUMAB-ACTL
     Indication: Hepatocellular carcinoma
     Dosage: 300 MG
     Route: 041
     Dates: start: 20230406, end: 20230406

REACTIONS (4)
  - Malignant neoplasm progression [Fatal]
  - Pancreatic enzymes increased [Recovered/Resolved]
  - Pneumonia [Not Recovered/Not Resolved]
  - Tumour invasion [Fatal]

NARRATIVE: CASE EVENT DATE: 20230508
